FAERS Safety Report 4988093-4 (Version None)
Quarter: 2006Q2

REPORT INFORMATION
  Report Type: 
  Country: None (occurrence: None)
  Receive Date: 20060425
  Receipt Date: 20060413
  Transmission Date: 20061013
  Serious: Yes (Life-Threatening, Other)
  Sender: FDA-Public Use
  Company Number: 200610501GDS

PATIENT
  Age: 82 Year
  Sex: Female

DRUGS (6)
  1. CIPROFLOXACIN HCL [Suspect]
     Indication: LUNG INFECTION
     Dosage: 250 MG, BID; 250 MG, QD
     Dates: start: 20031216, end: 20031226
  2. CIPROFLOXACIN HCL [Suspect]
     Indication: LUNG INFECTION
     Dosage: 250 MG, BID; 250 MG, QD
     Dates: start: 20040107, end: 20040113
  3. AMIODARONE HYDROCHLORIDE [Concomitant]
  4. DIOVAN [Concomitant]
  5. LASIX [Concomitant]
  6. LEVOTHYROXINE SODIUM [Concomitant]

REACTIONS (3)
  - HYPOCALCAEMIA [None]
  - RENAL FAILURE ACUTE [None]
  - RENAL TUBULAR NECROSIS [None]
